FAERS Safety Report 21215895 (Version 1)
Quarter: 2022Q3

REPORT INFORMATION
  Report Type: Report from Study
  Country: CA (occurrence: CA)
  Receive Date: 20220816
  Receipt Date: 20220816
  Transmission Date: 20221027
  Serious: Yes (Hospitalization, Other)
  Sender: FDA-Public Use
  Company Number: None

PATIENT
  Age: 51 Year
  Sex: Female

DRUGS (4)
  1. METHOTREXATE [Suspect]
     Active Substance: METHOTREXATE
     Indication: Product used for unknown indication
     Dosage: 1 EVERY 1 DAYS
     Route: 058
  2. UPADACITINIB [Suspect]
     Active Substance: UPADACITINIB
     Indication: Rheumatoid arthritis
     Dosage: TABLET(EXTENDED RELEASE), 1 EVERY 1 DAYS
     Route: 048
  3. TYLENOL [Concomitant]
     Active Substance: ACETAMINOPHEN
     Indication: Pyrexia
  4. METHOTREXATE [Suspect]
     Active Substance: METHOTREXATE
     Indication: Product used for unknown indication

REACTIONS (15)
  - Abdominal pain [Recovered/Resolved]
  - Atypical pneumonia [Recovered/Resolved]
  - Blood urine present [Recovered/Resolved]
  - Haemangioma [Recovered/Resolved]
  - Heart rate decreased [Recovered/Resolved]
  - Hepatic cyst [Recovered/Resolved]
  - Hepatic lesion [Recovered/Resolved]
  - Immunosuppression [Recovered/Resolved]
  - Infection [Recovered/Resolved]
  - Inflammation [Recovered/Resolved]
  - Malaise [Recovered/Resolved]
  - Oxygen saturation decreased [Recovered/Resolved]
  - Protein urine present [Recovered/Resolved]
  - Pulmonary oedema [Recovered/Resolved]
  - Pyrexia [Recovered/Resolved]
